FAERS Safety Report 6695455-6 (Version None)
Quarter: 2010Q2

REPORT INFORMATION
  Report Type: 
  Country: None (occurrence: None)
  Receive Date: 20100422
  Receipt Date: 20100422
  Transmission Date: 20101027
  Serious: No
  Sender: FDA-Public Use
  Company Number: None

PATIENT
  Age: 71 Year
  Sex: Male
  Weight: 69.5 kg

DRUGS (2)
  1. VERAPAMIL [Suspect]
     Indication: HYPERTENSION
     Dosage: VERAPAMIL 180 QD PO
     Route: 048
  2. AMBIEN [Suspect]
     Indication: INSOMNIA
     Dosage: AMBIEN 10G QID PO
     Route: 048

REACTIONS (2)
  - CONSTIPATION [None]
  - MALAISE [None]
